FAERS Safety Report 5570979-3 (Version None)
Quarter: 2007Q4

REPORT INFORMATION
  Report Type: 
  Country: None (occurrence: None)
  Receive Date: 20071221
  Receipt Date: 20071211
  Transmission Date: 20080405
  Serious: Yes (Other)
  Sender: FDA-Public Use
  Company Number: US-JNJFOC-20070504945

PATIENT
  Age: 63 Year
  Sex: Female

DRUGS (4)
  1. INVEGA [Suspect]
     Route: 048
  2. INVEGA [Suspect]
     Indication: DRUG USE FOR UNKNOWN INDICATION
     Route: 048
  3. QUETIAPINE [Concomitant]
  4. TRIFLUOPERAZINE [Concomitant]

REACTIONS (1)
  - NEUROLEPTIC MALIGNANT SYNDROME [None]
